FAERS Safety Report 6300415-0 (Version None)
Quarter: 2009Q3

REPORT INFORMATION
  Report Type: 
  Country: None (occurrence: None)
  Receive Date: 20090806
  Receipt Date: 20080904
  Transmission Date: 20100115
  Serious: No
  Sender: FDA-Public Use
  Company Number: US-ABBOTT-08P-163-0474291-00

PATIENT
  Sex: Male
  Weight: 111 kg

DRUGS (7)
  1. DEPAKOTE ER [Suspect]
     Indication: BIPOLAR DISORDER
  2. DEPAKOTE ER [Suspect]
     Route: 048
     Dates: start: 20080601, end: 20080903
  3. DEPAKOTE [Suspect]
     Indication: BIPOLAR DISORDER
     Route: 048
     Dates: start: 20020101, end: 20080601
  4. DEPAKOTE [Suspect]
     Route: 048
     Dates: start: 20080903
  5. DIAZEPAM [Suspect]
     Indication: BIPOLAR DISORDER
     Dosage: 10 MG TID-QID
     Route: 048
  6. SERTRALINE [Concomitant]
     Indication: DRUG USE FOR UNKNOWN INDICATION
     Route: 048
  7. FLUTICASONE PROPIONATE [Concomitant]
     Indication: SEASONAL ALLERGY
     Route: 045

REACTIONS (4)
  - ANXIETY [None]
  - DRUG EFFECT DECREASED [None]
  - HEADACHE [None]
  - TACHYPHRENIA [None]
